FAERS Safety Report 5408211-3 (Version None)
Quarter: 2007Q3

REPORT INFORMATION
  Report Type: 
  Country: None (occurrence: None)
  Receive Date: 20070806
  Receipt Date: 20070806
  Transmission Date: 20080115
  Serious: Yes (Hospitalization)
  Sender: FDA-Public Use
  Company Number: None

PATIENT
  Sex: Female
  Weight: 60.81 kg

DRUGS (6)
  1. TOPOTECAN [Suspect]
     Dosage: 15.9 MG
  2. CIPRO [Concomitant]
  3. FENTANYL [Concomitant]
  4. LOVENOX [Concomitant]
  5. NICODERM [Concomitant]
  6. PERCOCET [Concomitant]

REACTIONS (2)
  - FLANK PAIN [None]
  - IMPLANT SITE PAIN [None]
